FAERS Safety Report 6400306-0 (Version None)
Quarter: 2009Q4

REPORT INFORMATION
  Report Type: 
  Country: None (occurrence: None)
  Receive Date: 20091014
  Receipt Date: 20091009
  Transmission Date: 20100525
  Serious: Yes (Other)
  Sender: FDA-Public Use
  Company Number: AR-BRISTOL-MYERS SQUIBB COMPANY-14805006

PATIENT
  Sex: Female

DRUGS (3)
  1. ORENCIA [Suspect]
     Indication: RHEUMATOID ARTHRITIS
     Route: 042
     Dates: start: 20040101
  2. METHOTREXATE [Suspect]
  3. FOLIC ACID [Suspect]

REACTIONS (4)
  - AMNESIA [None]
  - CEREBRAL CYST [None]
  - COGNITIVE DISORDER [None]
  - NEOPLASM [None]
